FAERS Safety Report 5776663-5 (Version None)
Quarter: 2008Q2

REPORT INFORMATION
  Report Type: 
  Country: None (occurrence: None)
  Receive Date: 20080618
  Receipt Date: 20080229
  Transmission Date: 20081010
  Serious: No
  Sender: FDA-Public Use
  Company Number: US-ASTRAZENECA-2008UW04193

PATIENT
  Age: 30 Year
  Sex: Female

DRUGS (1)
  1. SYMBICORT [Suspect]
     Route: 055
     Dates: start: 20080225

REACTIONS (4)
  - DIZZINESS [None]
  - FEELING JITTERY [None]
  - MALAISE [None]
  - TREMOR [None]
